FAERS Safety Report 9643172 (Version 1)
Quarter: 2013Q4

REPORT INFORMATION
  Report Type: Spontaneous
  Country: BR (occurrence: BR)
  Receive Date: 20131024
  Receipt Date: 20131024
  Transmission Date: 20140711
  Serious: Yes (Other)
  Sender: FDA-Public Use
  Company Number: BR-ASTRAZENECA-2013SE77773

PATIENT
  Age: 40 Year
  Sex: Male

DRUGS (1)
  1. BRILINTA [Suspect]
     Route: 048

REACTIONS (2)
  - Pericardial effusion [Unknown]
  - Dyspnoea [Recovered/Resolved]
